FAERS Safety Report 7354352-3 (Version None)
Quarter: 2011Q1

REPORT INFORMATION
  Report Type: 
  Country: None (occurrence: None)
  Receive Date: 20110316
  Receipt Date: 20110304
  Transmission Date: 20110831
  Serious: Yes (Other)
  Sender: FDA-Public Use
  Company Number: CA-JNJFOC-20100701883

PATIENT
  Sex: Female
  Weight: 157 kg

DRUGS (15)
  1. TRANDOLAPRIL [Concomitant]
  2. TRAMADOL HYDROCHLORIDE/ACETAMINOPHEN [Concomitant]
  3. VITAMIN B-12 [Concomitant]
     Route: 050
  4. VITAMIN D [Concomitant]
  5. REMICADE [Suspect]
     Indication: RHEUMATOID ARTHRITIS
     Route: 042
  6. FOLIC ACID [Concomitant]
  7. ZANTAC [Concomitant]
  8. REMICADE [Suspect]
     Route: 042
  9. HYDROCHLOROTHIAZIDE [Concomitant]
  10. CALCIUM [Concomitant]
  11. ATROVENT [Concomitant]
  12. MULTI-VITAMINS [Concomitant]
  13. PLAQUENIL [Concomitant]
  14. ARAVA [Concomitant]
  15. FLOVENT [Concomitant]

REACTIONS (4)
  - HYPOAESTHESIA [None]
  - PAIN IN EXTREMITY [None]
  - TREATMENT NONCOMPLIANCE [None]
  - NEUROPATHY PERIPHERAL [None]
